FAERS Safety Report 11656089 (Version 3)
Quarter: 2015Q4

REPORT INFORMATION
  Report Type: Spontaneous
  Country: GB (occurrence: GB)
  Receive Date: 20151023
  Receipt Date: 20151203
  Transmission Date: 20160304
  Serious: Yes (Other)
  Sender: FDA-Public Use
  Company Number: GB-AMGEN-GBRSP2015100744

PATIENT
  Age: 60 Year
  Sex: Male

DRUGS (1)
  1. ENBREL [Suspect]
     Active Substance: ETANERCEPT
     Indication: RHEUMATOID ARTHRITIS
     Dosage: 50 MG, UNK
     Route: 065
     Dates: start: 20150720, end: 20151005

REACTIONS (11)
  - Rash [Unknown]
  - Pulmonary pain [Not Recovered/Not Resolved]
  - Nasopharyngitis [Unknown]
  - Lower respiratory tract infection [Not Recovered/Not Resolved]
  - Muscle spasms [Unknown]
  - Muscle disorder [Unknown]
  - Influenza like illness [Unknown]
  - Cold sweat [Unknown]
  - Joint swelling [Unknown]
  - Arthralgia [Unknown]
  - Dermatitis [Unknown]
